FAERS Safety Report 6787373-X (Version None)
Quarter: 2010Q2

REPORT INFORMATION
  Report Type: 
  Country: None (occurrence: None)
  Receive Date: 20100623
  Receipt Date: 20040301
  Transmission Date: 20101027
  Serious: No
  Sender: FDA-Public Use
  Company Number: US-PFIZER INC-2004011887

PATIENT
  Age: 30 Year
  Sex: Male
  Weight: 68.04 kg

DRUGS (4)
  1. GEODON [Suspect]
     Indication: SCHIZOAFFECTIVE DISORDER
     Route: 048
     Dates: start: 20030501
  2. GEODON [Suspect]
     Indication: BIPOLAR I DISORDER
  3. LORAZEPAM [Concomitant]
     Route: 048
  4. CELEXA [Concomitant]
     Route: 048

REACTIONS (8)
  - DELUSION [None]
  - HAIR GROWTH ABNORMAL [None]
  - LIVER FUNCTION TEST ABNORMAL [None]
  - LOCAL SWELLING [None]
  - MASKED FACIES [None]
  - NIGHTMARE [None]
  - SWELLING FACE [None]
  - TARDIVE DYSKINESIA [None]
